FAERS Safety Report 6578542 (Version 5)
Quarter: 2013Q2

REPORT INFORMATION
  Report Type: Spontaneous
  Country: US (occurrence: US)
  Receive Date: 20080312
  Receipt Date: 20130521
  Transmission Date: 20140414
  Serious: Yes (Hospitalization)
  Sender: FDA-Public Use
  Company Number: US-BAYER-200815770NA

PATIENT
  Age: 37 Year
  Sex: Female
  Weight: 83.9 kg

DRUGS (4)
  1. YAZ [Suspect]
     Dosage: 1 TAB/DAY
     Route: 048
  2. EFFEXOR [Concomitant]
     Indication: DEPRESSION
     Dates: start: 1996
  3. EFFEXOR XR [Concomitant]
     Dosage: 75 MG, UNK
     Dates: start: 20080201
  4. PROAIR HFA [Concomitant]
     Dosage: UNK
     Dates: start: 20080125

REACTIONS (7)
  - Pulmonary embolism [Recovered/Resolved]
  - Injury [Recovered/Resolved]
  - General physical health deterioration [Recovered/Resolved]
  - Anxiety [None]
  - Emotional distress [None]
  - Pain [Recovered/Resolved]
  - Pain [None]
